FAERS Safety Report 20255918 (Version 2)
Quarter: 2022Q4

REPORT INFORMATION
  Report Type: Spontaneous
  Country: US (occurrence: US)
  Receive Date: 20211230
  Receipt Date: 20221005
  Transmission Date: 20230113
  Serious: Yes (Other)
  Sender: FDA-Public Use
  Company Number: US-SA-SAC20211227001246

PATIENT
  Age: 69 Year
  Sex: Female

DRUGS (1)
  1. ZANTAC [Suspect]
     Active Substance: RANITIDINE HYDROCHLORIDE
     Indication: Dyspepsia
     Dosage: 150 MG, OTHER
     Route: 048
     Dates: start: 198301, end: 201912

REACTIONS (2)
  - Hepatic cancer stage IV [Not Recovered/Not Resolved]
  - Endometrial cancer stage IV [Unknown]

NARRATIVE: CASE EVENT DATE: 20180101
